FAERS Safety Report 5449616-4 (Version None)
Quarter: 2007Q3

REPORT INFORMATION
  Report Type: 
  Country: None (occurrence: None)
  Receive Date: 20070912
  Receipt Date: 20070905
  Transmission Date: 20080115
  Serious: Yes (Hospitalization)
  Sender: FDA-Public Use
  Company Number: PHBS2007IT14667

PATIENT
  Age: 59 Year
  Sex: Female

DRUGS (2)
  1. FEMARA [Concomitant]
     Route: 048
  2. ZOMETA [Suspect]
     Dosage: 4 MG/MONTH
     Route: 042
     Dates: start: 20041014, end: 20070426

REACTIONS (3)
  - COMPUTERISED TOMOGRAM ABNORMAL [None]
  - FACE AND MOUTH X-RAY ABNORMAL [None]
  - OSTEONECROSIS [None]
